FAERS Safety Report 6336655-4 (Version None)
Quarter: 2009Q3

REPORT INFORMATION
  Report Type: 
  Country: None (occurrence: None)
  Receive Date: 20090831
  Receipt Date: 20090831
  Transmission Date: 20100115
  Serious: Yes (Other)
  Sender: FDA-Public Use
  Company Number: None

PATIENT
  Age: 50 Year
  Sex: Female
  Weight: 69.8539 kg

DRUGS (2)
  1. NEURONTIN [Suspect]
     Indication: HOT FLUSH
     Dosage: TAKE 1 CAPSULE EVERY 6 HOURS PO
     Route: 048
     Dates: start: 20090724, end: 20090824
  2. NEURONTIN [Suspect]
     Indication: MENOPAUSE
     Dosage: TAKE 1 CAPSULE EVERY 6 HOURS PO
     Route: 048
     Dates: start: 20090724, end: 20090824

REACTIONS (7)
  - ABNORMAL BEHAVIOUR [None]
  - ABNORMAL DREAMS [None]
  - AMNESIA [None]
  - DRUG INEFFECTIVE [None]
  - HALLUCINATION [None]
  - HYPERSOMNIA [None]
  - VISION BLURRED [None]
